FAERS Safety Report 19062329 (Version 1)
Quarter: 2021Q1

REPORT INFORMATION
  Report Type: Report from Study
  Country: MX (occurrence: MX)
  Receive Date: 20210326
  Receipt Date: 20210326
  Transmission Date: 20210420
  Serious: Yes (Other)
  Sender: FDA-Public Use
  Company Number: MX-JNJFOC-20210341369

PATIENT
  Age: 49 Year
  Sex: Female
  Weight: 56 kg

DRUGS (8)
  1. SIMPONI [Suspect]
     Active Substance: GOLIMUMAB
     Indication: RHEUMATOID ARTHRITIS
     Dosage: TREATMENT START DATE PROVIDED AS 09/JUL/1905
     Route: 058
  2. CALCIUM;COLECALCIFEROL [Concomitant]
     Active Substance: CALCIUM\CHOLECALCIFEROL
  3. OMEPRAZOLE. [Concomitant]
     Active Substance: OMEPRAZOLE
  4. PREDNISONE. [Concomitant]
     Active Substance: PREDNISONE
  5. ACEMETACINE [Concomitant]
     Active Substance: ACEMETACIN
  6. PARACETAMOL [Concomitant]
     Active Substance: ACETAMINOPHEN
  7. CALCITRIOL. [Concomitant]
     Active Substance: CALCITRIOL
  8. LEFLUNOMIDE. [Concomitant]
     Active Substance: LEFLUNOMIDE

REACTIONS (2)
  - Pneumonia [Recovering/Resolving]
  - Influenza [Not Recovered/Not Resolved]

NARRATIVE: CASE EVENT DATE: 20210224
